FAERS Safety Report 6061691-5 (Version None)
Quarter: 2009Q1

REPORT INFORMATION
  Report Type: 
  Country: None (occurrence: None)
  Receive Date: 20090202
  Receipt Date: 20090122
  Transmission Date: 20090719
  Serious: Yes (Other)
  Sender: FDA-Public Use
  Company Number: JP-PFIZER INC-2009159546

PATIENT

DRUGS (5)
  1. DOXORUBICIN HCL [Suspect]
     Indication: B-CELL LYMPHOMA
  2. RITUXAN [Suspect]
     Indication: B-CELL LYMPHOMA
  3. ENDOXAN [Suspect]
     Indication: B-CELL LYMPHOMA
  4. ONCOVIN [Suspect]
     Indication: B-CELL LYMPHOMA
  5. PREDONINE [Suspect]
     Indication: B-CELL LYMPHOMA
     Route: 048

REACTIONS (1)
  - LEUKOENCEPHALOPATHY [None]
